FAERS Safety Report 4864457-4 (Version None)
Quarter: 2005Q4

REPORT INFORMATION
  Report Type: 
  Country: None (occurrence: None)
  Receive Date: 20051222
  Receipt Date: 20051212
  Transmission Date: 20060501
  Serious: Yes (Hospitalization)
  Sender: FDA-Public Use
  Company Number: SE-JNJFOC-20051204647

PATIENT
  Age: 25 Year
  Sex: Male

DRUGS (3)
  1. PARACETAMOL [Suspect]
  2. PARACETAMOL [Suspect]
     Indication: ABDOMINAL PAIN
     Dosage: 5-6 GRAMS IN REPEATED DOSES OF 0.5-1GRAM AT A TIME FOR 2-3 DAYS
  3. CHLORAMPHENICOL [Concomitant]
     Indication: CAMPYLOBACTER GASTROENTERITIS

REACTIONS (3)
  - HEPATIC FAILURE [None]
  - RENAL IMPAIRMENT [None]
  - THROMBOCYTOPENIA [None]
